FAERS Safety Report 22209975 (Version 1)
Quarter: 2023Q2

REPORT INFORMATION
  Report Type: Other
  Country: US (occurrence: None)
  Receive Date: 20230414
  Receipt Date: 20230414
  Transmission Date: 20230722
  Serious: Yes (Other)
  Sender: FDA-Public Use
  Company Number: US-ROCHE-3329551

PATIENT
  Age: 77 Year
  Sex: Female

DRUGS (1)
  1. ALECENSA [Suspect]
     Active Substance: ALECTINIB HYDROCHLORIDE
     Indication: Lung neoplasm malignant
     Dosage: TAKE 4 CAPSULE(S) BY MOUTH TWICE A DAY WITH FOOD . DO NOT OPEN OR DISSOLVE THE CONTENTS OF THE CAPSU
     Route: 048

REACTIONS (4)
  - Non-small cell lung cancer metastatic [Unknown]
  - Fibromyalgia [Unknown]
  - Arthritis [Unknown]
  - Road traffic accident [Unknown]
